FAERS Safety Report 7416053-2 (Version None)
Quarter: 2011Q2

REPORT INFORMATION
  Report Type: 
  Country: None (occurrence: None)
  Receive Date: 20110414
  Receipt Date: 20110404
  Transmission Date: 20111010
  Serious: Yes (Hospitalization)
  Sender: FDA-Public Use
  Company Number: JP-ROCHE-767334

PATIENT
  Sex: Female
  Weight: 50 kg

DRUGS (10)
  1. FLUOROURACIL [Concomitant]
     Route: 041
     Dates: start: 20100927, end: 20110101
  2. AVASTIN [Suspect]
     Indication: COLON CANCER METASTATIC
     Route: 041
     Dates: start: 20101101, end: 20110124
  3. ELPLAT [Concomitant]
     Route: 041
     Dates: start: 20100927, end: 20110105
  4. FLUOROURACIL [Concomitant]
     Route: 041
     Dates: start: 20110124, end: 20110126
  5. DECADRON [Concomitant]
     Dosage: DECADRON(DEXAMETHASONE SODIUM PHOSPHATE)
     Route: 042
     Dates: start: 20100927, end: 20110124
  6. IRINOTECAN HCL [Concomitant]
     Route: 041
     Dates: start: 20110124, end: 20110124
  7. LOXONIN [Concomitant]
     Route: 048
     Dates: start: 20101020, end: 20110207
  8. LEVOFOLINATE [Concomitant]
     Route: 041
     Dates: start: 20110124, end: 20110124
  9. LEVOFOLINATE [Concomitant]
     Route: 041
     Dates: start: 20100927, end: 20110101
  10. ALOXI [Concomitant]
     Route: 042
     Dates: start: 20100927, end: 20110124

REACTIONS (6)
  - PROTEIN URINE PRESENT [None]
  - DIARRHOEA [None]
  - RECTAL TENESMUS [None]
  - COLITIS ISCHAEMIC [None]
  - ABDOMINAL PAIN [None]
  - THROMBOSIS [None]
